FAERS Safety Report 8778468 (Version 4)
Quarter: 2018Q4

REPORT INFORMATION
  Report Type: Spontaneous
  Country: FR (occurrence: FR)
  Receive Date: 20120912
  Receipt Date: 20181127
  Transmission Date: 20190205
  Serious: Yes (Hospitalization, Other)
  Sender: FDA-Public Use
  Company Number: FR-GLAXOSMITHKLINE-B0828217A

PATIENT
  Age: 46 Year
  Sex: Male

DRUGS (8)
  1. CLARITHROMYCINE [Concomitant]
     Active Substance: CLARITHROMYCIN
     Indication: RESPIRATORY TRACT INFECTION
     Dosage: UNK
     Dates: start: 20120806, end: 20120814
  2. TAVANIC [Suspect]
     Active Substance: LEVOFLOXACIN
     Indication: SPUTUM PURULENT
  3. CELESTENE [BETAMETHASONE SODIUM PHOSPHATE] [Concomitant]
     Active Substance: BETAMETHASONE SODIUM PHOSPHATE
     Indication: RESPIRATORY DISORDER
     Dosage: UNK
     Dates: start: 20120806, end: 201208
  4. TAVANIC [Suspect]
     Active Substance: LEVOFLOXACIN
     Indication: PYREXIA
  5. BECOTIDE [Suspect]
     Active Substance: BECLOMETHASONE DIPROPIONATE
     Indication: RESPIRATORY TRACT INFECTION
     Dosage: 250 UNK, UNK
     Route: 055
     Dates: start: 20120815, end: 20120820
  6. TAVANIC [Suspect]
     Active Substance: LEVOFLOXACIN
     Indication: COUGH
  7. TAVANIC [Suspect]
     Active Substance: LEVOFLOXACIN
     Indication: RESPIRATORY TRACT INFECTION
     Dosage: 500 MG, 1D
     Route: 048
     Dates: start: 20120815, end: 20120820
  8. VENTOLINE [Suspect]
     Active Substance: ALBUTEROL
     Indication: RESPIRATORY TRACT INFECTION
     Dosage: 200 UNK, UNK
     Route: 055
     Dates: start: 20120815, end: 20120819

REACTIONS (4)
  - Pyrexia [Recovered/Resolved]
  - Fungal oesophagitis [Recovering/Resolving]
  - Rash pustular [Recovered/Resolved]
  - Folliculitis [Recovered/Resolved]

NARRATIVE: CASE EVENT DATE: 20120815
